FAERS Safety Report 7010369-X (Version None)
Quarter: 2010Q3

REPORT INFORMATION
  Report Type: 
  Country: None (occurrence: None)
  Receive Date: 20100909
  Receipt Date: 20100519
  Transmission Date: 20110219
  Serious: No
  Sender: FDA-Public Use
  Company Number: 2010SP027975

PATIENT
  Age: 19 Year
  Sex: Female

DRUGS (4)
  1. SAPHRIS [Suspect]
     Dosage: 10 MG; BID; SL, 5 MG; QD; SL, 10 MG QD; SL
     Route: 060
     Dates: start: 20100201, end: 20100323
  2. SAPHRIS [Suspect]
     Dosage: 10 MG; BID; SL, 5 MG; QD; SL, 10 MG QD; SL
     Route: 060
     Dates: start: 20100323, end: 20100616
  3. SAPHRIS [Suspect]
     Dosage: 10 MG; BID; SL, 5 MG; QD; SL, 10 MG QD; SL
     Route: 060
     Dates: start: 20100616
  4. ORAL CONTRACEPTIVE [Concomitant]

REACTIONS (4)
  - ALOPECIA [None]
  - INCORRECT ROUTE OF DRUG ADMINISTRATION [None]
  - SOMNOLENCE [None]
  - UNDERDOSE [None]
